FAERS Safety Report 7557443-7 (Version None)
Quarter: 2011Q2

REPORT INFORMATION
  Report Type: 
  Country: None (occurrence: None)
  Receive Date: 20110616
  Receipt Date: 20110616
  Transmission Date: 20111010
  Serious: No
  Sender: FDA-Public Use
  Company Number: None

PATIENT
  Age: 32 Year
  Sex: Female
  Weight: 67.1324 kg

DRUGS (1)
  1. METHOTREXATE [Suspect]
     Indication: ECTOPIC PREGNANCY
     Dosage: ONE TIME IM
     Route: 030

REACTIONS (9)
  - FATIGUE [None]
  - DYSPNOEA [None]
  - PRODUCT QUALITY ISSUE [None]
  - FLATULENCE [None]
  - TREMOR [None]
  - ASTHENIA [None]
  - PYREXIA [None]
  - DIZZINESS [None]
  - HEADACHE [None]
